FAERS Safety Report 7414489 (Version 2)
Quarter: 2015Q4

REPORT INFORMATION
  Report Type: Report from Study
  Country: US (occurrence: US)
  Receive Date: 20100609
  Receipt Date: 20151203
  Transmission Date: 20160305
  Serious: Yes (Hospitalization)
  Sender: FDA-Public Use
  Company Number: US-ROCHE-707757

PATIENT
  Age: 71 Year
  Sex: Female

DRUGS (7)
  1. PACLITAXEL. [Suspect]
     Active Substance: PACLITAXEL
     Indication: OVARIAN EPITHELIAL CANCER
     Dosage: OVER 3 HOUR ON DAY 1 OF 3 WEEKS CYCLE (FOR CYCLE 1-6)
     Route: 042
     Dates: start: 20100302
  2. CISPLATIN. [Suspect]
     Active Substance: CISPLATIN
     Indication: OVARIAN EPITHELIAL CANCER
     Dosage: DAY 2 OF EVERY 3 WEEK CYCLE FORM CYCLE 1-6.
     Route: 033
     Dates: start: 20100302
  3. CISPLATIN. [Suspect]
     Active Substance: CISPLATIN
     Indication: MALIGNANT PERITONEAL NEOPLASM
     Dosage: AUC 6 IV ON DAY 1 AS PER ARM I
     Route: 042
  4. CISPLATIN. [Suspect]
     Active Substance: CISPLATIN
     Indication: FALLOPIAN TUBE CANCER
  5. BEVACIZUMAB [Suspect]
     Active Substance: BEVACIZUMAB
     Indication: OVARIAN EPITHELIAL CANCER
     Dosage: OVER 30-90 MINUTES ON DAY ONE BEGINING WITH CYCLE 2.PHASE A(CYCLE:1-6), PHASE:B(CYCLE:7-22)
     Route: 042
  6. PACLITAXEL. [Suspect]
     Active Substance: PACLITAXEL
     Indication: MALIGNANT PERITONEAL NEOPLASM
     Dosage: ON DAY 8
     Route: 033
  7. PACLITAXEL. [Suspect]
     Active Substance: PACLITAXEL
     Indication: FALLOPIAN TUBE CANCER
     Dosage: OVER 1 HR ON DAYS 1, 8 + 15 AS PER ARM I
     Route: 042

REACTIONS (14)
  - Large intestine perforation [Unknown]
  - Hyponatraemia [Recovered/Resolved]
  - Lung infection [Recovered/Resolved]
  - Infection [Recovered/Resolved]
  - Glomerular filtration rate decreased [Recovered/Resolved]
  - Platelet count decreased [Unknown]
  - Chronic kidney disease [Recovered/Resolved]
  - Blood creatinine increased [Recovered/Resolved]
  - Hypocalcaemia [Recovered/Resolved]
  - Enterocolitis infectious [Recovered/Resolved]
  - Hypomagnesaemia [Recovered/Resolved]
  - Anaemia [Unknown]
  - Dehydration [Recovered/Resolved]
  - Hypoalbuminaemia [Recovered/Resolved]

NARRATIVE: CASE EVENT DATE: 20100414
